FAERS Safety Report 21161776 (Version 1)
Quarter: 2022Q3

REPORT INFORMATION
  Report Type: Spontaneous
  Country: PL (occurrence: PL)
  Receive Date: 20220802
  Receipt Date: 20220802
  Transmission Date: 20221027
  Serious: Yes (Other)
  Sender: FDA-Public Use
  Company Number: PL-MYLANLABS-2020M1071464

PATIENT
  Sex: Male

DRUGS (1)
  1. CREON [Suspect]
     Active Substance: PANCRELIPASE AMYLASE\PANCRELIPASE LIPASE\PANCRELIPASE PROTEASE
     Indication: Pancreatitis chronic
     Dosage: UNK (25000), CREON 25.000
     Route: 048

REACTIONS (20)
  - Organising pneumonia [Recovered/Resolved]
  - Condition aggravated [Recovering/Resolving]
  - Drug ineffective [Recovering/Resolving]
  - Pancreatitis chronic [Recovering/Resolving]
  - C-reactive protein increased [Unknown]
  - Chromaturia [Unknown]
  - Erythema [Recovered/Resolved]
  - Pruritus [Recovered/Resolved]
  - Fungal infection [Unknown]
  - Mean cell volume abnormal [Unknown]
  - Product quality issue [Unknown]
  - Hyperglycaemia [Unknown]
  - Wound [Unknown]
  - Red blood cell count abnormal [Unknown]
  - Blood potassium decreased [Recovering/Resolving]
  - Skin irritation [Recovered/Resolved]
  - Anxiety [Unknown]
  - Limb injury [Unknown]
  - Inflammation [Unknown]
  - Haematocrit abnormal [Unknown]

NARRATIVE: CASE EVENT DATE: 20150116
